FAERS Safety Report 14771485 (Version 3)
Quarter: 2021Q2

REPORT INFORMATION
  Report Type: Spontaneous
  Country: US (occurrence: US)
  Receive Date: 20180417
  Receipt Date: 20210413
  Transmission Date: 20210716
  Serious: No
  Sender: FDA-Public Use
  Company Number: US-ALLERGAN-1730536US

PATIENT
  Age: 81 Year
  Sex: Female

DRUGS (1)
  1. LUMIGAN [Suspect]
     Active Substance: BIMATOPROST
     Indication: GLAUCOMA
     Dosage: 2 GTT, BID
     Route: 047
     Dates: end: 20170712

REACTIONS (5)
  - Eye pruritus [Unknown]
  - Abnormal sensation in eye [Unknown]
  - Product dose omission issue [Unknown]
  - Product complaint [Unknown]
  - Eye irritation [Unknown]

NARRATIVE: CASE EVENT DATE: 201706
